FAERS Safety Report 13076222 (Version 2)
Quarter: 2017Q3

REPORT INFORMATION
  Report Type: Spontaneous
  Country: US (occurrence: US)
  Receive Date: 20161230
  Receipt Date: 20170919
  Transmission Date: 20171127
  Serious: No
  Sender: FDA-Public Use
  Company Number: US-009507513-1612USA012383

PATIENT
  Age: 53 Year
  Sex: Male

DRUGS (1)
  1. DEXAMETHASONE. [Suspect]
     Active Substance: DEXAMETHASONE
     Indication: DYSPHONIA
     Dosage: 0.1 ML OF A 10 MG/ML, SIX STEROID INJECTIONS
     Route: 058

REACTIONS (1)
  - Vocal cord atrophy [Recovered/Resolved]
